FAERS Safety Report 9348933 (Version 2)
Quarter: 2013Q3

REPORT INFORMATION
  Report Type: Spontaneous
  Country: US (occurrence: US)
  Receive Date: 20130614
  Receipt Date: 20130708
  Transmission Date: 20140515
  Serious: No
  Sender: FDA-Public Use
  Company Number: US-ASTRAZENECA-2013SE41414

PATIENT
  Sex: Female

DRUGS (8)
  1. ATACAND HCT [Suspect]
     Indication: BLOOD PRESSURE ABNORMAL
     Dosage: GENERIC
     Route: 048
     Dates: start: 2012
  2. ATACAND HCT [Suspect]
     Indication: FLUID RETENTION
     Dosage: GENERIC
     Route: 048
     Dates: start: 2012
  3. ATACAND HCT [Suspect]
     Indication: BLOOD PRESSURE ABNORMAL
     Dosage: 16-12.5MG BID
     Route: 048
  4. ATACAND HCT [Suspect]
     Indication: FLUID RETENTION
     Dosage: 16-12.5MG BID
     Route: 048
  5. LISINOPRIL [Suspect]
     Indication: BLOOD PRESSURE ABNORMAL
     Route: 048
     Dates: start: 2012
  6. LABETALOL [Suspect]
     Indication: BLOOD PRESSURE ABNORMAL
     Dates: start: 2012
  7. SULFUR DRUGS [Suspect]
     Route: 061
  8. POTASSIUM [Suspect]
     Route: 065

REACTIONS (13)
  - Hypertension [Not Recovered/Not Resolved]
  - Palpitations [Not Recovered/Not Resolved]
  - Micturition frequency decreased [Not Recovered/Not Resolved]
  - Disorientation [Recovered/Resolved]
  - Pain [Unknown]
  - Drug hypersensitivity [Unknown]
  - Hypoaesthesia [Recovered/Resolved]
  - Headache [Recovered/Resolved]
  - Pain [Unknown]
  - Drug hypersensitivity [Unknown]
  - Rash macular [Recovered/Resolved]
  - Pruritus [Recovered/Resolved]
  - Drug ineffective [Not Recovered/Not Resolved]
